FAERS Safety Report 9542808 (Version 2)
Quarter: 2013Q3

REPORT INFORMATION
  Report Type: Spontaneous
  Country: US (occurrence: US)
  Receive Date: 20130923
  Receipt Date: 20130925
  Transmission Date: 20140515
  Serious: No
  Sender: FDA-Public Use
  Company Number: US-PFIZER INC-2013270325

PATIENT
  Age: 78 Year
  Sex: Female

DRUGS (1)
  1. ADVIL [Suspect]
     Indication: HEADACHE
     Dosage: 200 MG, TWO TIMES A DAY
     Route: 048
     Dates: end: 201309

REACTIONS (3)
  - Oral discomfort [Recovering/Resolving]
  - Dyspepsia [Recovering/Resolving]
  - Product quality issue [Recovering/Resolving]
